FAERS Safety Report 19351532 (Version 1)
Quarter: 2021Q2

REPORT INFORMATION
  Report Type: Spontaneous
  Country: ES (occurrence: ES)
  Receive Date: 20210531
  Receipt Date: 20210531
  Transmission Date: 20210717
  Serious: Yes (Other)
  Sender: FDA-Public Use
  Company Number: ES-CURIUM-2021000406

PATIENT
  Age: 61 Year
  Sex: Female

DRUGS (1)
  1. SODIUM IODIDE I 131 [Suspect]
     Active Substance: SODIUM IODIDE I-131
     Dosage: 5550 MBQ
     Route: 065

REACTIONS (3)
  - Stomatitis [Recovered/Resolved]
  - Pharyngeal inflammation [Recovered/Resolved]
  - Oesophagitis [Recovered/Resolved]
